FAERS Safety Report 19894250 (Version 1)
Quarter: 2021Q3

REPORT INFORMATION
  Report Type: Spontaneous
  Country: US (occurrence: US)
  Receive Date: 20210928
  Receipt Date: 20210928
  Transmission Date: 20211014
  Serious: Yes (Other)
  Sender: FDA-Public Use
  Company Number: NVSC2021US219111

PATIENT

DRUGS (1)
  1. CARBAMAZEPINE. [Suspect]
     Active Substance: CARBAMAZEPINE
     Indication: PAROXYSMAL CHOREOATHETOSIS
     Dosage: 100?800 MG RANGE, QD
     Route: 065

REACTIONS (2)
  - Leukopenia [Unknown]
  - Product use in unapproved indication [Unknown]
